FAERS Safety Report 26191062 (Version 1)
Quarter: 2025Q4

REPORT INFORMATION
  Report Type: Spontaneous
  Country: US (occurrence: None)
  Receive Date: 20251223
  Receipt Date: 20251223
  Transmission Date: 20260117
  Serious: Yes (Death, Life-Threatening, Hospitalization, Other)
  Sender: ENDO
  Company Number: US-ENDO USA, INC.-2025-002434

PATIENT
  Age: 57 Year
  Sex: Female

DRUGS (1)
  1. BUPROPION HYDROCHLORIDE [Suspect]
     Active Substance: BUPROPION HYDROCHLORIDE
     Indication: Product used for unknown indication
     Dosage: 12 GRAM, UNKNOWN
     Route: 061

REACTIONS (13)
  - Aortic dissection [Fatal]
  - Coronary artery occlusion [Fatal]
  - Respiratory failure [Fatal]
  - Toxic cardiomyopathy [Unknown]
  - Cardiogenic shock [Unknown]
  - Electrocardiogram QT prolonged [Unknown]
  - Metabolic acidosis [Unknown]
  - Hypoxia [Unknown]
  - Ventricular tachycardia [Unknown]
  - Intentional overdose [Fatal]
  - Circulatory collapse [Fatal]
  - Cardiac arrest [Fatal]
  - Seizure [Unknown]
